FAERS Safety Report 6943987-5 (Version None)
Quarter: 2010Q3

REPORT INFORMATION
  Report Type: 
  Country: None (occurrence: None)
  Receive Date: 20100827
  Receipt Date: 20100824
  Transmission Date: 20110219
  Serious: Yes (Other)
  Sender: FDA-Public Use
  Company Number: US-ASTRAZENECA-2007UW25207

PATIENT
  Age: 47 Year
  Sex: Female
  Weight: 72.6 kg

DRUGS (38)
  1. SEROQUEL [Suspect]
     Indication: BIPOLAR DISORDER
     Dosage: 25-900 MG
     Route: 048
     Dates: start: 20030124
  2. SEROQUEL [Suspect]
     Indication: PSYCHOTIC DISORDER
     Dosage: 25-900 MG
     Route: 048
     Dates: start: 20030124
  3. SEROQUEL [Suspect]
     Indication: DEPRESSION
     Dosage: 25-900 MG
     Route: 048
     Dates: start: 20030124
  4. SEROQUEL [Suspect]
     Dosage: 25 MG TO 100 MG
     Route: 048
     Dates: start: 20050401, end: 20070401
  5. SEROQUEL [Suspect]
     Dosage: 25 MG TO 100 MG
     Route: 048
     Dates: start: 20050401, end: 20070401
  6. SEROQUEL [Suspect]
     Dosage: 25 MG TO 100 MG
     Route: 048
     Dates: start: 20050401, end: 20070401
  7. SEROQUEL [Suspect]
     Dosage: 25 MG TO 300 MG
     Route: 048
     Dates: start: 20030101, end: 20070101
  8. SEROQUEL [Suspect]
     Dosage: 25 MG TO 300 MG
     Route: 048
     Dates: start: 20030101, end: 20070101
  9. SEROQUEL [Suspect]
     Dosage: 25 MG TO 300 MG
     Route: 048
     Dates: start: 20030101, end: 20070101
  10. GLYBURIDE [Concomitant]
     Route: 048
     Dates: start: 20040925
  11. LOW-OGESTREL-28 [Concomitant]
     Dosage: DAILY
     Route: 048
     Dates: start: 20030605
  12. LITHIUM CARBONATE [Concomitant]
     Dosage: 150-900 MG
     Route: 048
     Dates: start: 20020910
  13. TRAZODONE HCL [Concomitant]
     Dosage: 50 MG, 1-2 TABS EVERY NIGHT
     Route: 048
     Dates: start: 20050714
  14. ATENOLOL [Concomitant]
     Dosage: 25-100 MG
     Route: 048
     Dates: start: 19990120
  15. CLONAZEPAM [Concomitant]
     Route: 048
     Dates: start: 20050330
  16. AMIBID DM [Concomitant]
     Dosage: 30 MG/600 MG
     Route: 048
     Dates: start: 20050614
  17. LOVASTATIN [Concomitant]
     Route: 048
     Dates: start: 20040713
  18. ZETIA [Concomitant]
     Route: 048
     Dates: start: 20050216
  19. SULPHAMETH/ TRIMETHOPRIM [Concomitant]
     Dosage: 800/160 TWO TIMES A DAY
     Route: 048
     Dates: start: 20050507
  20. PROPOXYPHENE NAPSYLATE AND ACETAMINOPHEN [Concomitant]
     Dosage: 100 MG/ 650 MG 1 TO 2 TABS EVERY FOUR TO SIX HOURS
     Route: 048
     Dates: start: 20050507
  21. TRIHEXYPHENIDYL HCL [Concomitant]
     Route: 048
     Dates: start: 20050330
  22. BUSPIRONE HCL [Concomitant]
     Dosage: 10-80 MG
     Route: 048
     Dates: start: 20030821
  23. ASPIRIN [Concomitant]
     Route: 048
     Dates: start: 20040701
  24. RANITIDINE [Concomitant]
     Indication: GASTROOESOPHAGEAL REFLUX DISEASE
     Route: 048
     Dates: start: 20041104
  25. PREMARIN [Concomitant]
     Dosage: 0.625 MG- 1.25 MG
     Route: 048
     Dates: start: 20000616
  26. CHLORDIAZEPOXIDE [Concomitant]
     Route: 048
     Dates: start: 20030220
  27. METHYLPREDNISOLONE [Concomitant]
     Dosage: 4 MG
     Dates: start: 20001006
  28. DIPHENHYDRAMINE [Concomitant]
     Dosage: 25-75 MG
     Route: 048
     Dates: start: 20030501
  29. ACETAMINOPHEN W/ CODEINE NO. 3 [Concomitant]
     Dosage: EVERY FOUR HOURS
     Route: 048
     Dates: start: 20030616
  30. RISPERDAL [Concomitant]
     Indication: DEPRESSION
     Dosage: 2 MG TO 37.5 MG
     Dates: start: 20060101, end: 20070101
  31. RISPERDAL [Concomitant]
     Indication: BIPOLAR DISORDER
     Dosage: 2 MG TO 37.5 MG
     Dates: start: 20060101, end: 20070101
  32. ZYPREXA [Concomitant]
     Indication: DEPRESSION
     Dosage: 20-40 MG
     Route: 048
     Dates: start: 20030424
  33. ZYPREXA [Concomitant]
     Indication: BIPOLAR DISORDER
     Dosage: 20-40 MG
     Route: 048
     Dates: start: 20030424
  34. ZYPREXA [Concomitant]
     Dates: start: 20030101, end: 20040101
  35. ZYPREXA [Concomitant]
     Dates: start: 20030101, end: 20040101
  36. ABILIFY [Concomitant]
     Dates: start: 20050101, end: 20060101
  37. ABILIFY [Concomitant]
     Dosage: 5-10 MG
     Route: 048
     Dates: start: 20050117
  38. HALDOL [Concomitant]
     Dates: start: 20070101

REACTIONS (5)
  - DIABETIC COMPLICATION [None]
  - DRUG INEFFECTIVE [None]
  - HYPERGLYCAEMIA [None]
  - NEUROPATHY PERIPHERAL [None]
  - TYPE 2 DIABETES MELLITUS [None]
